FAERS Safety Report 17072229 (Version 1)
Quarter: 2019Q4

REPORT INFORMATION
  Report Type: Spontaneous
  Country: US (occurrence: US)
  Receive Date: 20191123
  Receipt Date: 20191123
  Transmission Date: 20200122
  Serious: Yes (Other)
  Sender: FDA-Public Use
  Company Number: None

PATIENT
  Age: 61 Year
  Sex: Female

DRUGS (9)
  1. HUMALOG U-100 INSULIN SUBQ [Concomitant]
  2. METRONIDAZOLE. [Suspect]
     Active Substance: METRONIDAZOLE
     Indication: INFECTION
     Dosage: ?          QUANTITY:1 TABLET(S);OTHER ROUTE:INFECTIONS?
  3. MYCOSTATIN [Concomitant]
     Active Substance: NYSTATIN
  4. ROSUVASTATIN 40MG [Concomitant]
     Active Substance: ROSUVASTATIN
  5. CLOPIDOGREL [Concomitant]
     Active Substance: CLOPIDOGREL BISULFATE
  6. ATENOLOL 50MG [Concomitant]
     Active Substance: ATENOLOL
  7. LEVOTHYROXINE 150 MCG [Concomitant]
  8. SYNTHROID [Concomitant]
     Active Substance: LEVOTHYROXINE SODIUM
  9. LISINOPRIL 10MG [Concomitant]
     Active Substance: LISINOPRIL

REACTIONS (1)
  - Dyspnoea [None]

NARRATIVE: CASE EVENT DATE: 20191123
